FAERS Safety Report 16742050 (Version 2)
Quarter: 2019Q3

REPORT INFORMATION
  Report Type: Spontaneous
  Country: US (occurrence: US)
  Receive Date: 20190826
  Receipt Date: 20190912
  Transmission Date: 20191005
  Serious: Yes (Death, Hospitalization)
  Sender: FDA-Public Use
  Company Number: US-ASTRAZENECA-2019SF21775

PATIENT
  Age: 81 Year
  Sex: Female
  Weight: 77.2 kg

DRUGS (2)
  1. IMFINZI [Suspect]
     Active Substance: DURVALUMAB
     Indication: NON-SMALL CELL LUNG CANCER STAGE III
     Route: 042
     Dates: start: 20190709
  2. IMFINZI [Suspect]
     Active Substance: DURVALUMAB
     Indication: LUNG NEOPLASM MALIGNANT
     Route: 042
     Dates: start: 20190709

REACTIONS (4)
  - Pyrexia [Fatal]
  - Pneumonitis [Fatal]
  - Respiratory failure [Fatal]
  - Dyspnoea [Fatal]

NARRATIVE: CASE EVENT DATE: 20190721
